FAERS Safety Report 5023876-6 (Version None)
Quarter: 2006Q2

REPORT INFORMATION
  Report Type: 
  Country: None (occurrence: None)
  Receive Date: 20060426
  Receipt Date: 20060216
  Transmission Date: 20061013
  Serious: Yes (Other)
  Sender: FDA-Public Use
  Company Number: 2006025217

PATIENT
  Sex: Female
  Weight: 50.8029 kg

DRUGS (3)
  1. LYRICA [Suspect]
     Indication: BACK PAIN
     Dosage: 150 MG (75 MG, 2 IN 1 D)
     Dates: start: 20060101
  2. LIPITOR [Concomitant]
  3. ANTIHYPERTENSIVES (ANTIHYPERTENSIVES) [Concomitant]

REACTIONS (1)
  - DIZZINESS [None]
